FAERS Safety Report 6255585-X (Version None)
Quarter: 2009Q2

REPORT INFORMATION
  Report Type: 
  Country: None (occurrence: None)
  Receive Date: 20090630
  Receipt Date: 20090608
  Transmission Date: 20091009
  Serious: Yes (Hospitalization)
  Sender: FDA-Public Use
  Company Number: 20090220

PATIENT
  Age: 64 Year
  Sex: Male

DRUGS (2)
  1. CEFTRIAXONE [Suspect]
     Dosage: 2G EVERY 12 HOURS,  INTRAVENOUS
     Route: 042
  2. AMOXICILLIN [Concomitant]

REACTIONS (3)
  - ACUTE ABDOMEN [None]
  - BLOOD BILIRUBIN INCREASED [None]
  - HEPATIC ENZYME INCREASED [None]
